FAERS Safety Report 24793393 (Version 1)
Quarter: 2024Q4

REPORT INFORMATION
  Report Type: Report from Study
  Country: US (occurrence: US)
  Receive Date: 20241231
  Receipt Date: 20241231
  Transmission Date: 20250115
  Serious: No
  Sender: MIRUM PHARMACEUTICALS
  Company Number: US-MIRUM PHARMACEUTICALS, INC.-US-MIR-24-01070

PATIENT

DRUGS (1)
  1. LIVMARLI [Suspect]
     Active Substance: MARALIXIBAT CHLORIDE
     Indication: Liver disorder
     Dosage: 0.9 MILLILITER, QD
     Route: 065
     Dates: start: 20241026

REACTIONS (9)
  - Peripheral swelling [Recovering/Resolving]
  - Paraesthesia [Unknown]
  - Skin tightness [Unknown]
  - Pain of skin [Unknown]
  - Oedema [Unknown]
  - Liver function test increased [Unknown]
  - Muscle spasms [Unknown]
  - Treatment noncompliance [Unknown]
  - Off label use [Unknown]

NARRATIVE: CASE EVENT DATE: 20240101
